FAERS Safety Report 12136818 (Version 2)
Quarter: 2016Q2

REPORT INFORMATION
  Report Type: Spontaneous
  Country: JP (occurrence: JP)
  Receive Date: 20160302
  Receipt Date: 20160406
  Transmission Date: 20160815
  Serious: Yes (Other)
  Sender: FDA-Public Use
  Company Number: JP-NOVOPROD-481449

PATIENT
  Sex: Male

DRUGS (1)
  1. NOVOLIN [Suspect]
     Active Substance: INSULIN HUMAN
     Indication: DIABETES MELLITUS
     Dosage: 18 U, QD
     Route: 058

REACTIONS (4)
  - Eye luxation [Unknown]
  - Blood glucose abnormal [Unknown]
  - Therapeutic response decreased [Unknown]
  - Facial paralysis [Unknown]
